FAERS Safety Report 5228147-0 (Version None)
Quarter: 2007Q1

REPORT INFORMATION
  Report Type: 
  Country: None (occurrence: None)
  Receive Date: 20070130
  Receipt Date: 20070120
  Transmission Date: 20070707
  Serious: Yes (Other)
  Sender: FDA-Public Use
  Company Number: 2007304032

PATIENT
  Age: 49 Year
  Sex: Female
  Weight: 79.3795 kg

DRUGS (7)
  1. LISTERINE WHITENING PRE-BRUSH RINSE (NO ACTIVE INGREDIENT) [Suspect]
     Indication: DENTAL CARE
     Dosage: 3 TEASPOONFULS TWICE, ORAL
     Route: 048
     Dates: start: 20070119, end: 20070119
  2. LORCET-HD [Concomitant]
  3. ROBAXIN [Concomitant]
  4. PAXIL [Concomitant]
  5. PROTONIX [Concomitant]
  6. DURAGESIC-100 [Concomitant]
  7. LYRICA [Concomitant]

REACTIONS (2)
  - CAUSTIC INJURY [None]
  - GLOSSITIS [None]
